FAERS Safety Report 6996214-7 (Version None)
Quarter: 2010Q3

REPORT INFORMATION
  Report Type: 
  Country: None (occurrence: None)
  Receive Date: 20100918
  Receipt Date: 20090209
  Transmission Date: 20110219
  Serious: No
  Sender: FDA-Public Use
  Company Number: US-WYE-H07537709

PATIENT
  Age: 30 Year
  Sex: Female
  Weight: 129.39 kg

DRUGS (4)
  1. EFFEXOR XR [Suspect]
     Indication: DEPRESSION
     Route: 048
     Dates: start: 20081223
  2. ZYRTEC [Concomitant]
  3. MOTRIN [Concomitant]
  4. LOESTRIN 1.5/30 [Concomitant]

REACTIONS (6)
  - DIZZINESS [None]
  - DRY EYE [None]
  - EXCESSIVE EYE BLINKING [None]
  - FATIGUE [None]
  - HEADACHE [None]
  - PHOTOPHOBIA [None]
